FAERS Safety Report 20668496 (Version 1)
Quarter: 2022Q2

REPORT INFORMATION
  Report Type: Spontaneous
  Country: CN (occurrence: CN)
  Receive Date: 20220404
  Receipt Date: 20220404
  Transmission Date: 20220720
  Serious: Yes (Hospitalization)
  Sender: FDA-Public Use
  Company Number: CN-HQ SPECIALTY-CN-2022INT000090

PATIENT
  Age: 51 Year
  Sex: Female

DRUGS (3)
  1. IMIPENEM AND CILASTATIN [Suspect]
     Active Substance: CILASTATIN SODIUM\IMIPENEM
     Indication: Pelvic abscess
     Dosage: 0.5 G, EVERY 8 H
     Route: 042
  2. IMIPENEM AND CILASTATIN [Suspect]
     Active Substance: CILASTATIN SODIUM\IMIPENEM
     Indication: Peritonitis
  3. LEVOFLOXACIN [Concomitant]
     Active Substance: LEVOFLOXACIN
     Indication: Urinary tract infection
     Dosage: 0.5 GRAM, QD
     Route: 042

REACTIONS (1)
  - Secondary thrombocytosis [Recovered/Resolved]
